FAERS Safety Report 10096026 (Version 2)
Quarter: 2014Q2

REPORT INFORMATION
  Report Type: Spontaneous
  Country: US (occurrence: US)
  Receive Date: 20140422
  Receipt Date: 20140509
  Transmission Date: 20141212
  Serious: Yes (Hospitalization)
  Sender: FDA-Public Use
  Company Number: US-BAYER-2014-056972

PATIENT
  Age: 29 Year
  Sex: Female

DRUGS (7)
  1. YAZ [Suspect]
  2. OCELLA [Suspect]
  3. XANAX [Concomitant]
  4. VICODIN [Concomitant]
  5. AMOXICILLIN [Concomitant]
     Dosage: 500 MG, TID 30 DISPENSED
     Route: 048
  6. AZITHROMYCIN [Concomitant]
     Dosage: 250 MG, TWO AT ONCE, THEN ONE DAILY FOR FOUR DAYS
     Route: 048
  7. PREDNISONE [Concomitant]
     Dosage: 5 MG, TAKE 8 TODAY AND ONE LESS EACH DAY UNTIL GONE; 36 DISPENSED
     Route: 048

REACTIONS (1)
  - Deep vein thrombosis [None]
